FAERS Safety Report 26154321 (Version 1)
Quarter: 2025Q4

REPORT INFORMATION
  Report Type: Report from Study
  Country: EU (occurrence: EU)
  Receive Date: 20251215
  Receipt Date: 20251215
  Transmission Date: 20260117
  Serious: Yes (Other)
  Sender: ABBVIE
  Company Number: EU-ABBVIE-6423674

PATIENT
  Age: 51 Year
  Sex: Female

DRUGS (1)
  1. RINVOQ [Suspect]
     Active Substance: UPADACITINIB
     Indication: Rheumatoid arthritis
     Route: 048
     Dates: start: 20241031

REACTIONS (3)
  - Malignant melanoma [Not Recovered/Not Resolved]
  - Arthropathy [Recovering/Resolving]
  - Hypertrophy [Recovering/Resolving]

NARRATIVE: CASE EVENT DATE: 20250701
